FAERS Safety Report 6692355-2 (Version None)
Quarter: 2010Q2

REPORT INFORMATION
  Report Type: 
  Country: None (occurrence: None)
  Receive Date: 20100419
  Receipt Date: 20100414
  Transmission Date: 20101027
  Serious: Yes (Other)
  Sender: FDA-Public Use
  Company Number: 2010SP021559

PATIENT
  Sex: Male

DRUGS (3)
  1. TEMODAL [Suspect]
     Indication: ASTROCYTOMA
     Dosage: 185 MG; QD; 285 EMG; QD
  2. COTRIM [Concomitant]
  3. NAVOBAN [Concomitant]

REACTIONS (1)
  - RENAL FAILURE [None]
